FAERS Safety Report 4500347-4 (Version None)
Quarter: 2004Q4

REPORT INFORMATION
  Report Type: 
  Country: None (occurrence: None)
  Receive Date: 20041112
  Receipt Date: 20041102
  Transmission Date: 20050328
  Serious: Yes (Death, Other)
  Sender: FDA-Public Use
  Company Number: CN-MERCK-0411CHN00007

PATIENT
  Age: 12 Year
  Sex: Female

DRUGS (4)
  1. VIOXX [Suspect]
     Indication: RHEUMATOID ARTHRITIS
     Route: 048
     Dates: start: 20020730, end: 20021230
  2. METHOTREXATE [Concomitant]
     Indication: RHEUMATOID ARTHRITIS
     Route: 048
     Dates: start: 20020730, end: 20021230
  3. [THERAPY UNSPECIFIED] [Concomitant]
     Indication: RHEUMATOID ARTHRITIS
     Route: 048
     Dates: start: 20020730, end: 20021230
  4. SPIRULINE [Concomitant]
     Route: 048
     Dates: start: 20021007

REACTIONS (3)
  - CHEST DISCOMFORT [None]
  - DEATH [None]
  - PRESCRIBED OVERDOSE [None]
